FAERS Safety Report 7771575-X (Version None)
Quarter: 2011Q3

REPORT INFORMATION
  Report Type: 
  Country: None (occurrence: None)
  Receive Date: 20110922
  Receipt Date: 20110111
  Transmission Date: 20111222
  Serious: No
  Sender: FDA-Public Use
  Company Number: US-ASTRAZENECA-2011SE02047

PATIENT
  Sex: Female

DRUGS (1)
  1. SEROQUEL XR [Suspect]
     Route: 048

REACTIONS (5)
  - BIPOLAR I DISORDER [None]
  - IMPAIRED WORK ABILITY [None]
  - LOSS OF EMPLOYMENT [None]
  - HOMELESS [None]
  - DEPRESSION [None]
